FAERS Safety Report 4289638-2 (Version None)
Quarter: 2004Q1

REPORT INFORMATION
  Report Type: 
  Country: None (occurrence: None)
  Receive Date: 20040205
  Receipt Date: 20040115
  Transmission Date: 20041129
  Serious: Yes (Hospitalization)
  Sender: FDA-Public Use
  Company Number: B0318520A

PATIENT
  Age: 45 Year
  Sex: Male
  Weight: 62.8685 kg

DRUGS (6)
  1. ZANTAC [Suspect]
     Indication: GASTRIC ULCER
     Dosage: ORAL
     Route: 048
     Dates: start: 20031117, end: 20031130
  2. POLAPREZINC (FORMULATION UNKNOWN) (POLAPREZINC) [Suspect]
     Indication: GASTRIC ULCER
     Dosage: ORAL
     Route: 048
     Dates: start: 20031117, end: 20031130
  3. NORFLOXACIN [Suspect]
     Dates: start: 20031130, end: 20031130
  4. ZANTAC [Suspect]
     Indication: GASTRIC ULCER
     Dosage: ORAL
     Route: 048
     Dates: start: 20031204
  5. COLD MEDICATION [Concomitant]
  6. DOMPERIDONE [Concomitant]

REACTIONS (5)
  - DRUG ERUPTION [None]
  - HYPERSENSITIVITY [None]
  - LIVER FUNCTION TEST ABNORMAL [None]
  - PYREXIA [None]
  - VOMITING [None]
